FAERS Safety Report 7397472-X (Version None)
Quarter: 2011Q2

REPORT INFORMATION
  Report Type: 
  Country: None (occurrence: None)
  Receive Date: 20110406
  Receipt Date: 20110323
  Transmission Date: 20111010
  Serious: Yes (Other)
  Sender: FDA-Public Use
  Company Number: PHHY2011US24019

PATIENT
  Sex: Male

DRUGS (9)
  1. GLUCOSAMINE [Concomitant]
  2. AREDIA [Suspect]
     Dosage: UNK
     Route: 042
  3. THALIDOMIDE [Concomitant]
  4. ASCORBIC ACID [Concomitant]
  5. NEXIUM [Concomitant]
  6. LOVAZA [Concomitant]
  7. FLOMAX [Concomitant]
  8. SIMVASTATIN [Concomitant]
  9. VITAMIN B [Concomitant]

REACTIONS (3)
  - SWELLING FACE [None]
  - DENTAL CARIES [None]
  - TOOTH ABSCESS [None]
